FAERS Safety Report 10246536 (Version 2)
Quarter: 2014Q3

REPORT INFORMATION
  Report Type: Spontaneous
  Country: DE (occurrence: DE)
  Receive Date: 20140619
  Receipt Date: 20140811
  Transmission Date: 20150326
  Serious: Yes (Other)
  Sender: FDA-Public Use
  Company Number: DE-AMGEN-DEUSP2014045399

PATIENT
  Sex: Male
  Weight: 1.66 kg

DRUGS (6)
  1. NEULASTA [Suspect]
     Active Substance: PEGFILGRASTIM
     Indication: PRODUCT USED FOR UNKNOWN INDICATION
     Dosage: UNK
     Route: 064
  2. RITUXIMAB [Suspect]
     Active Substance: RITUXIMAB
     Indication: PRODUCT USED FOR UNKNOWN INDICATION
     Dosage: 630 MG, ONCE IN A DAY (1 IN 1 D)
     Route: 064
     Dates: start: 20131031, end: 20131115
  3. DOXORUBICIN [Suspect]
     Active Substance: DOXORUBICIN
     Indication: PRODUCT USED FOR UNKNOWN INDICATION
     Dosage: 84 MG, ONCE IN A DAY (1 IN 1 D)
     Route: 064
     Dates: start: 20131101, end: 20131116
  4. PREDNISOLONE. [Suspect]
     Active Substance: PREDNISOLONE
     Indication: PRODUCT USED FOR UNKNOWN INDICATION
     Dosage: 100 MG, ONCE IN A DAY (1 IN 1 D)
     Route: 064
     Dates: start: 20131101, end: 20131120
  5. CYCLOPHOSPHAMIDE. [Suspect]
     Active Substance: CYCLOPHOSPHAMIDE
     Indication: PRODUCT USED FOR UNKNOWN INDICATION
     Dosage: 1260 MG, ONCE IN A DAY (1 IN 1 D)
     Route: 064
     Dates: start: 20131101, end: 20131116
  6. VINCRISTINE [Suspect]
     Active Substance: VINCRISTINE
     Indication: PRODUCT USED FOR UNKNOWN INDICATION
     Dosage: 2 MG, ONCE IN A DAY (1 IN 1 D)
     Route: 064
     Dates: start: 20131101, end: 20131116

REACTIONS (4)
  - Foetal exposure during pregnancy [Unknown]
  - Anaemia [Unknown]
  - Granulocytopenia neonatal [Unknown]
  - Inguinal hernia [Recovered/Resolved with Sequelae]

NARRATIVE: CASE EVENT DATE: 20131202
